FAERS Safety Report 9548466 (Version 1)
Quarter: 2013Q2

REPORT INFORMATION
  Report Type: Spontaneous
  Country: US (occurrence: None)
  Receive Date: 20130627
  Receipt Date: 20130627
  Transmission Date: 20140414
  Serious: No
  Sender: FDA-Public Use
  Company Number: 1000043237

PATIENT
  Age: 70 Year
  Sex: Male

DRUGS (13)
  1. LINZESS [Suspect]
     Indication: IRRITABLE BOWEL SYNDROME
     Route: 048
     Dates: start: 20130306
  2. OXYCONTIN (OXYCODONE HYDROCHLORIDE) [Concomitant]
  3. GABAPENTIN (GABAPENTIN) (GABAPENTIN) [Concomitant]
  4. LIBRAX (CHLORDIAZEPOXIE, CLIDINIUM) (CHLORDIAZEPOXIDE, CLIDINUM) [Concomitant]
  5. FIBER (POLYCARBOPHIL CALCIUM) [Concomitant]
  6. IMDUR (ISOSORBIDE MONONITRATE) (ISOSORBIDE MONONITRATE) [Concomitant]
  7. PLAVIX (CLOPIDOGREL BISULFATE) (CLOPIOGREL BISULFATE) [Concomitant]
  8. ASPIRIN (ACETYLSALICYLIC ACID) (ACETYLSALICYLIC ACID) [Concomitant]
  9. NEXIUM (ESOMEPRAZOLE) (ESOMEPRAZOLE) [Concomitant]
  10. ALIGN (BIFIDOBACTERIUM INFANTIS) (BIFIDOBACTERIUM INFANTIS) [Concomitant]
  11. ATENOLOL (ATENOLOL) (ATENOLOL) [Concomitant]
  12. TRICOR (FENOFIBRATE) (FENOFIBRATE) [Concomitant]
  13. MYLANTA (SIMETHICONE, MAGNESIUM HYDROXIDE, ALUMINUM HYDROXIDE) (SIMETHICONE, MAGNESIUM HYDROXIDE, ALUMINUM HYDROXIDE) [Concomitant]

REACTIONS (4)
  - Abdominal pain upper [None]
  - Asthenia [None]
  - Nausea [None]
  - Diarrhoea [None]
